FAERS Safety Report 18448910 (Version 6)
Quarter: 2022Q2

REPORT INFORMATION
  Report Type: Spontaneous
  Country: US (occurrence: US)
  Receive Date: 20201030
  Receipt Date: 20220414
  Transmission Date: 20220721
  Serious: No
  Sender: FDA-Public Use
  Company Number: US-PFIZER INC-2020377024

PATIENT
  Age: 64 Year
  Sex: Female
  Weight: 58.51 kg

DRUGS (7)
  1. PREMARIN [Suspect]
     Active Substance: ESTROGENS, CONJUGATED
     Indication: Hormone replacement therapy
     Dosage: 1 G, 1X/DAY (1GM PER VAGINA AT HS (AT NIGHT))
     Route: 067
     Dates: end: 202008
  2. PREMARIN [Suspect]
     Active Substance: ESTROGENS, CONJUGATED
     Indication: Menopausal symptoms
     Dosage: 1 G, 2X/WEEK (1 GM VAGINALLY 2X WK)
     Route: 067
  3. PREMARIN [Suspect]
     Active Substance: ESTROGENS, CONJUGATED
     Indication: Menopausal disorder
     Dosage: UNK, 2X/WEEK (INSERT 1 APPLICATORFUL TWICE A WEEK BY VAGINAL ROUTE 3 REFILLS)
     Route: 067
  4. PREMARIN [Suspect]
     Active Substance: ESTROGENS, CONJUGATED
     Indication: Menopausal symptoms
     Dosage: UNK, DAILY (RX: CONJUGATED ESTROGENS (PREMARIN) 0.625 MG/GM CREAM)
     Route: 067
  5. PREMARIN [Suspect]
     Active Substance: ESTROGENS, CONJUGATED
     Indication: Growth hormone deficiency
     Dosage: 1 G (1 GM PV EVERY 72 HOUR)
  6. PREMARIN [Suspect]
     Active Substance: ESTROGENS, CONJUGATED
     Indication: Atrophy
     Dosage: UNK, 3X/DAY
     Dates: start: 202201
  7. PREMARIN [Suspect]
     Active Substance: ESTROGENS, CONJUGATED
     Dosage: UNK (THREE TIMES A WEEK)

REACTIONS (7)
  - Drug withdrawal syndrome [Unknown]
  - Vulvovaginal mycotic infection [Unknown]
  - Skin atrophy [Unknown]
  - Vulvovaginal discomfort [Unknown]
  - Vulvovaginal pruritus [Unknown]
  - Product prescribing error [Unknown]
  - Off label use [Unknown]
